FAERS Safety Report 10245041 (Version 1)
Quarter: 2014Q2

REPORT INFORMATION
  Report Type: Spontaneous
  Country: US (occurrence: US)
  Receive Date: 20140618
  Receipt Date: 20140618
  Transmission Date: 20141212
  Serious: No
  Sender: FDA-Public Use
  Company Number: US-GALDERMA-US14001451

PATIENT
  Age: 51 Year
  Sex: Male

DRUGS (9)
  1. MIRVASO (BRIMONIDINE) TOPICAL GEL, 0.33% [Suspect]
     Indication: ROSACEA
     Dosage: 0.33%
     Route: 061
     Dates: start: 20140409, end: 20140413
  2. COZAAR [Concomitant]
     Indication: HYPERTENSION
     Route: 048
  3. LIPITOR [Concomitant]
     Indication: HYPERCHOLESTEROLAEMIA
     Route: 048
  4. NORVIR [Concomitant]
     Indication: HIV INFECTION
     Route: 048
     Dates: start: 2010
  5. PREZISTA [Concomitant]
     Indication: HIV INFECTION
     Route: 048
     Dates: start: 2010
  6. TRUVADA [Concomitant]
     Indication: HIV INFECTION
     Route: 048
     Dates: start: 2010
  7. KETOCONAZOLE [Concomitant]
     Indication: SEBORRHOEIC DERMATITIS
     Dosage: 1%
     Route: 061
  8. CORTISONE CREAM [Concomitant]
     Indication: ECZEMA
     Route: 061
  9. ALLERGY SHOTS [Concomitant]
     Indication: ALLERGY PROPHYLAXIS
     Route: 058

REACTIONS (5)
  - Feeling hot [Not Recovered/Not Resolved]
  - Erythema [Not Recovered/Not Resolved]
  - Flushing [Not Recovered/Not Resolved]
  - Skin burning sensation [Not Recovered/Not Resolved]
  - Off label use [Recovered/Resolved]
